FAERS Safety Report 15684386 (Version 3)
Quarter: 2019Q1

REPORT INFORMATION
  Report Type: Spontaneous
  Country: AU (occurrence: AU)
  Receive Date: 20181204
  Receipt Date: 20190125
  Transmission Date: 20190417
  Serious: Yes (Other)
  Sender: FDA-Public Use
  Company Number: AU-GW PHARMA-201809AUGW0373

PATIENT

DRUGS (5)
  1. EPILIM [Concomitant]
     Active Substance: VALPROATE SODIUM
     Dosage: 400 MILLIGRAM, QD
     Route: 065
     Dates: start: 20181005
  2. FRISIUM [Concomitant]
     Active Substance: CLOBAZAM
     Indication: SEVERE MYOCLONIC EPILEPSY OF INFANCY
     Dosage: 15 MILLIGRAM, QD
     Route: 065
  3. CLONAZEPAM. [Concomitant]
     Active Substance: CLONAZEPAM
     Indication: SEVERE MYOCLONIC EPILEPSY OF INFANCY
     Dosage: UNK - ? SEP 2018
     Route: 065
  4. EPILIM [Concomitant]
     Active Substance: VALPROATE SODIUM
     Indication: SEVERE MYOCLONIC EPILEPSY OF INFANCY
     Dosage: 300 MILLIGRAM, QD
     Route: 065
     Dates: start: 20180909, end: 20181005
  5. EPIDIOLEX [Suspect]
     Active Substance: CANNABIDIOL
     Indication: SEVERE MYOCLONIC EPILEPSY OF INFANCY
     Dosage: 14.3 MG/KG, 1000 MILLIGRAM QD
     Route: 048
     Dates: start: 20170609

REACTIONS (3)
  - Generalised tonic-clonic seizure [Recovered/Resolved]
  - Seizure [Recovered/Resolved]
  - Seizure [Recovered/Resolved]

NARRATIVE: CASE EVENT DATE: 20180909
